FAERS Safety Report 8358596-3 (Version None)
Quarter: 2012Q2

REPORT INFORMATION
  Report Type: 
  Country: None (occurrence: None)
  Receive Date: 20120514
  Receipt Date: 20120508
  Transmission Date: 20120825
  Serious: Yes (Hospitalization, Other)
  Sender: FDA-Public Use
  Company Number: AU-B.I. PHARMACEUTICALS,INC./RIDGEFIELD-2012-AU-00831AU

PATIENT
  Sex: Female
  Weight: 62 kg

DRUGS (6)
  1. LAMICTAL [Concomitant]
     Dosage: 325 MG
  2. PRADAXA [Suspect]
     Indication: CEREBROVASCULAR ACCIDENT PROPHYLAXIS
     Dosage: 220 MG
     Dates: start: 20110921
  3. PHENOBARBITAL TAB [Concomitant]
  4. LEVOTHYROXINE SODIUM [Concomitant]
     Dosage: 200 MCG
  5. TEGRETOL [Concomitant]
     Dosage: 150 MG
  6. PRADAXA [Suspect]
     Dosage: 300 MG
     Dates: start: 20120430

REACTIONS (1)
  - CEREBROVASCULAR ACCIDENT [None]
